FAERS Safety Report 21358916 (Version 2)
Quarter: 2022Q4

REPORT INFORMATION
  Report Type: Spontaneous
  Country: PL (occurrence: PL)
  Receive Date: 20220921
  Receipt Date: 20221019
  Transmission Date: 20230113
  Serious: Yes (Other)
  Sender: FDA-Public Use
  Company Number: PL-PFIZER INC-PV202200065930

PATIENT
  Age: 61 Year
  Sex: Male

DRUGS (18)
  1. DOXORUBICIN HYDROCHLORIDE [Suspect]
     Active Substance: DOXORUBICIN HYDROCHLORIDE
     Indication: Diffuse large B-cell lymphoma recurrent
     Dosage: UNK
  2. CYTARABINE [Suspect]
     Active Substance: CYTARABINE
     Indication: Diffuse large B-cell lymphoma recurrent
     Dosage: UNK
  3. METHOTREXATE [Suspect]
     Active Substance: METHOTREXATE
     Indication: Diffuse large B-cell lymphoma recurrent
  4. CYCLOPHOSPHAMIDE [Suspect]
     Active Substance: CYCLOPHOSPHAMIDE
     Indication: Diffuse large B-cell lymphoma recurrent
  5. ETOPOSIDE [Suspect]
     Active Substance: ETOPOSIDE
     Indication: Diffuse large B-cell lymphoma recurrent
  6. PREDNISOLONE [Suspect]
     Active Substance: PREDNISOLONE
     Indication: Diffuse large B-cell lymphoma recurrent
  7. DEXAMETHASONE [Suspect]
     Active Substance: DEXAMETHASONE
     Indication: Diffuse large B-cell lymphoma recurrent
  8. VINCRISTINE [Suspect]
     Active Substance: VINCRISTINE
     Indication: Diffuse large B-cell lymphoma recurrent
  9. DAUNORUBICIN [Suspect]
     Active Substance: DAUNORUBICIN
     Indication: Diffuse large B-cell lymphoma recurrent
  10. ASPARAGINASE [Suspect]
     Active Substance: ASPARAGINASE
     Indication: Diffuse large B-cell lymphoma recurrent
  11. MERCAPTOPURINE [Suspect]
     Active Substance: MERCAPTOPURINE
     Indication: Diffuse large B-cell lymphoma recurrent
  12. GRANULOCYTE COLONY-STIMULATING FACTOR NOS [Suspect]
     Active Substance: GRANULOCYTE COLONY-STIMULATING FACTOR NOS
     Indication: Diffuse large B-cell lymphoma recurrent
  13. VINDESINE [Suspect]
     Active Substance: VINDESINE
     Indication: Diffuse large B-cell lymphoma recurrent
  14. THIOGUANINE [Suspect]
     Active Substance: THIOGUANINE
     Indication: Diffuse large B-cell lymphoma recurrent
  15. TENIPOSIDE [Suspect]
     Active Substance: TENIPOSIDE
     Indication: Diffuse large B-cell lymphoma recurrent
  16. IDARUBICIN [Suspect]
     Active Substance: IDARUBICIN
     Indication: Diffuse large B-cell lymphoma recurrent
  17. FLUDARABINE [Suspect]
     Active Substance: FLUDARABINE PHOSPHATE
     Indication: Diffuse large B-cell lymphoma recurrent
  18. CLADRIBINE [Suspect]
     Active Substance: CLADRIBINE
     Indication: Diffuse large B-cell lymphoma recurrent

REACTIONS (1)
  - Gastrointestinal protozoal infection [Recovered/Resolved]
